FAERS Safety Report 18877710 (Version 1)
Quarter: 2021Q1

REPORT INFORMATION
  Report Type: Spontaneous
  Country: US (occurrence: US)
  Receive Date: 20210211
  Receipt Date: 20210211
  Transmission Date: 20210420
  Serious: Yes (Other)
  Sender: FDA-Public Use
  Company Number: US-ROCHE-2765478

PATIENT
  Sex: Male

DRUGS (2)
  1. HEMLIBRA [Suspect]
     Active Substance: EMICIZUMAB-KXWH
     Dosage: 105 MG/0.7ML
     Route: 058
     Dates: start: 20201020
  2. HEMLIBRA [Suspect]
     Active Substance: EMICIZUMAB-KXWH
     Indication: CONGENITAL COAGULOPATHY
     Dosage: 150 MG/ML
     Route: 058
     Dates: start: 20201020

REACTIONS (2)
  - Secretion discharge [Unknown]
  - Arthralgia [Unknown]
